FAERS Safety Report 9555067 (Version 1)
Quarter: 2013Q3

REPORT INFORMATION
  Report Type: Spontaneous
  Country: US (occurrence: None)
  Receive Date: 20130724
  Receipt Date: 20130724
  Transmission Date: 20140515
  Serious: Yes (Other)
  Sender: FDA-Public Use
  Company Number: PHEH2013US005696

PATIENT
  Age: 32 Year
  Sex: Male
  Weight: 93.9 kg

DRUGS (1)
  1. GILENYA [Suspect]
     Route: 048
     Dates: start: 20130306

REACTIONS (2)
  - Chest discomfort [None]
  - Abdominal pain upper [None]
